FAERS Safety Report 8456477-8 (Version None)
Quarter: 2012Q2

REPORT INFORMATION
  Report Type: 
  Country: None (occurrence: None)
  Receive Date: 20120621
  Receipt Date: 20120612
  Transmission Date: 20120825
  Serious: Yes (Other)
  Sender: FDA-Public Use
  Company Number: US-ASTRAZENECA-2011SE16133

PATIENT
  Age: 43 Year
  Sex: Male

DRUGS (3)
  1. SEROQUEL [Suspect]
     Indication: INSOMNIA
     Route: 048
     Dates: start: 20030101
  2. LAMICTAL [Concomitant]
  3. SEROQUEL [Suspect]
     Indication: BIPOLAR DISORDER
     Route: 048
     Dates: start: 20030101

REACTIONS (4)
  - DRUG DOSE OMISSION [None]
  - SUICIDAL IDEATION [None]
  - MOOD SWINGS [None]
  - INSOMNIA [None]
